FAERS Safety Report 8319225-8 (Version None)
Quarter: 2012Q2

REPORT INFORMATION
  Report Type: 
  Country: None (occurrence: None)
  Receive Date: 20120427
  Receipt Date: 20120419
  Transmission Date: 20120825
  Serious: Yes (Hospitalization, Other)
  Sender: FDA-Public Use
  Company Number: DE-ALLERGAN-1116644US

PATIENT
  Age: 62 Year
  Sex: Male
  Weight: 99 kg

DRUGS (6)
  1. DEXAMETHASONE [Suspect]
     Indication: RETINAL OEDEMA
     Dosage: 0.7 MG, SINGLE
     Route: 031
     Dates: start: 20101026, end: 20101026
  2. VIGAMOX [Concomitant]
     Indication: POSTOPERATIVE CARE
     Dosage: UNK
     Route: 047
     Dates: start: 20110317, end: 20110327
  3. DEXAMETHASONE [Suspect]
     Indication: RETINAL VEIN OCCLUSION
     Dosage: 0.7 MG, SINGLE
     Route: 031
     Dates: start: 20110317, end: 20110317
  4. COSOPT [Concomitant]
     Indication: GLAUCOMA
     Dosage: UNK
     Route: 047
     Dates: start: 20091230
  5. ALPHAGAN P [Concomitant]
     Indication: OCULAR HYPERTENSION
     Dosage: UNK
     Route: 047
     Dates: start: 20110221
  6. MONODEX [Concomitant]
     Indication: POSTOPERATIVE CARE
     Dosage: UNK
     Route: 047
     Dates: start: 20110317, end: 20110327

REACTIONS (7)
  - CHORIORETINAL DISORDER [None]
  - VITREOUS LOSS [None]
  - HYPOTONY OF EYE [None]
  - VISUAL ACUITY REDUCED [None]
  - CATARACT [None]
  - EYE PAIN [None]
  - CHOROIDAL DETACHMENT [None]
